FAERS Safety Report 15648712 (Version 1)
Quarter: 2018Q4

REPORT INFORMATION
  Report Type: Spontaneous
  Country: GB (occurrence: GB)
  Receive Date: 20181122
  Receipt Date: 20181122
  Transmission Date: 20190205
  Serious: Yes (Disabling)
  Sender: FDA-Public Use
  Company Number: GB-009507513-1811GBR008056

PATIENT
  Age: 48 Year
  Sex: Male
  Weight: 105 kg

DRUGS (6)
  1. MIRTAZAPINE. [Suspect]
     Active Substance: MIRTAZAPINE
     Dosage: AT NIGHT
     Dates: start: 20180905
  2. LANSOPRAZOLE. [Concomitant]
     Active Substance: LANSOPRAZOLE
     Dosage: 1 DOSAGE FORM QD
     Dates: start: 20170823
  3. SERTRALINE HYDROCHLORIDE. [Concomitant]
     Active Substance: SERTRALINE HYDROCHLORIDE
     Dosage: AT NIGHT, AFTER TWO WEEKS INCREASE TO TWO AT NIGHT
     Dates: start: 20180808, end: 20180814
  4. SERTRALINE HYDROCHLORIDE. [Concomitant]
     Active Substance: SERTRALINE HYDROCHLORIDE
     Dosage: AT NIGHT, AFTER TWO WEEKS INCREASE TO TWO AT NIGHT
     Dates: start: 20180815, end: 20180905
  5. ZOPICLONE [Concomitant]
     Active Substance: ZOPICLONE
     Dosage: TAKE ONE AT NIGHT, FOR SHORT TERM. (AS NECESSARY)
     Dates: start: 20180808, end: 20180815
  6. FLUOXETINE [Concomitant]
     Active Substance: FLUOXETINE HYDROCHLORIDE
     Dosage: 1 DOSAGE FORM, QD
     Dates: start: 20180622, end: 20180808

REACTIONS (3)
  - Paraesthesia [Recovered/Resolved]
  - Burning sensation [Recovered/Resolved]
  - Neuralgia [Recovered/Resolved]

NARRATIVE: CASE EVENT DATE: 20181031
